FAERS Safety Report 9610666 (Version 1)
Quarter: 2013Q4

REPORT INFORMATION
  Report Type: Spontaneous
  Country: US (occurrence: US)
  Receive Date: 20131009
  Receipt Date: 20131009
  Transmission Date: 20140711
  Serious: Yes (Death)
  Sender: FDA-Public Use
  Company Number: US-ROCHE-1286546

PATIENT
  Sex: Female

DRUGS (8)
  1. XELODA [Suspect]
     Indication: PRODUCT USED FOR UNKNOWN INDICATION
     Dosage: DAYS 1-14 TAKE MED, REST SEVEN THEN START AGAIN
     Route: 048
  2. NEULASTA [Concomitant]
     Route: 065
  3. EXEMESTANE [Concomitant]
  4. ELAVIL (UNITED STATES) [Concomitant]
  5. BENADRYL (UNITED STATES) [Concomitant]
  6. GABAPENTIN [Concomitant]
  7. PERCOCET [Concomitant]
  8. ATIVAN [Concomitant]

REACTIONS (1)
  - Death [Fatal]
